FAERS Safety Report 17706954 (Version 2)
Quarter: 2020Q2

REPORT INFORMATION
  Report Type: Spontaneous
  Country: FR (occurrence: FR)
  Receive Date: 20200424
  Receipt Date: 20200603
  Transmission Date: 20200714
  Serious: Yes (Death, Life-Threatening)
  Sender: FDA-Public Use
  Company Number: FR-ANIPHARMA-2020-FR-000117

PATIENT
  Age: 88 Year
  Sex: Male

DRUGS (13)
  1. IBUPROFEN. [Suspect]
     Active Substance: IBUPROFEN
     Dosage: AN UNKNOWN DOSE AND FREQUENCY
     Route: 048
  2. SEROPLEX [Suspect]
     Active Substance: ESCITALOPRAM OXALATE
     Dosage: AN UNKNOWN DOSE AND FREQUENCY
     Route: 048
  3. TIMOPTOL [Suspect]
     Active Substance: TIMOLOL
     Dosage: AN UNKNOWN DOSE AND FREQUENCY
  4. CEFTRIAXONE. [Concomitant]
     Active Substance: CEFTRIAXONE
     Dosage: AN UNKNOWN DOSE AND FREQUENCY
     Route: 065
     Dates: start: 20200320
  5. CANDESARTAN CILEXETIL. [Suspect]
     Active Substance: CANDESARTAN CILEXETIL
     Indication: HYPERTENSION
     Dosage: AN UNKNOWN DOSE AND FREQUENCY
     Route: 048
  6. PANTOPRAZOLE [Suspect]
     Active Substance: PANTOPRAZOLE
     Dosage: AN UNKNOWN DOSE AND FREQUENCY
     Route: 048
  7. MOVICOL [Suspect]
     Active Substance: POLYETHYLENE GLYCOL 3350\POTASSIUM CHLORIDE\SODIUM BICARBONATE\SODIUM CHLORIDE
     Dosage: AN UNKNOWN DOSE AND FREQUENCY
     Route: 048
  8. METFORMIN [Suspect]
     Active Substance: METFORMIN HYDROCHLORIDE
     Dosage: AN UNKNOWN DOSE AND FREQUENCY
     Route: 048
  9. DEXAMETHASONE+OXYTETRACYCLINE [Suspect]
     Active Substance: DEXAMETHASONE\OXYTETRACYCLINE
     Dosage: AN UNKNOWN DOSE AND FREQUENCY
  10. MODOPAR [Suspect]
     Active Substance: BENSERAZIDE HYDROCHLORIDE\LEVODOPA
     Dosage: AN UNKNOWN DOSE AND FREQUENCY
     Route: 048
  11. XANAX [Suspect]
     Active Substance: ALPRAZOLAM
     Dosage: AN UNKNOWN DOSE AND FREQUENCY
     Route: 048
  12. NOVONORM [Suspect]
     Active Substance: REPAGLINIDE
     Dosage: AN UNKNOWN DOSE AND FREQUENCY
     Route: 048
  13. JANUVIA [Suspect]
     Active Substance: SITAGLIPTIN PHOSPHATE
     Dosage: AN UNKNOWN DOSE AND FREQUENCY
     Route: 048

REACTIONS (3)
  - Condition aggravated [Fatal]
  - Coronavirus infection [Fatal]
  - Lung disorder [Fatal]

NARRATIVE: CASE EVENT DATE: 20200326
